FAERS Safety Report 4523278-2 (Version None)
Quarter: 2004Q4

REPORT INFORMATION
  Report Type: 
  Country: None (occurrence: None)
  Receive Date: 20041210
  Receipt Date: 20041201
  Transmission Date: 20050328
  Serious: Yes (Death)
  Sender: FDA-Public Use
  Company Number: IN-JNJFOC-20041200210

PATIENT
  Age: 46 Year
  Sex: Female

DRUGS (2)
  1. INFLIXIMAB [Suspect]
     Indication: DRUG USE FOR UNKNOWN INDICATION
     Route: 042
  2. STEROIDS [Suspect]

REACTIONS (19)
  - AGGRESSION [None]
  - ANAL FISSURE [None]
  - CARDIO-RESPIRATORY ARREST [None]
  - CATARACT [None]
  - COLITIS ULCERATIVE [None]
  - CONFUSIONAL STATE [None]
  - DISORIENTATION [None]
  - DYSKINESIA [None]
  - DYSPNOEA [None]
  - HAEMOGLOBIN DECREASED [None]
  - HYPOTENSION [None]
  - IMMUNOSUPPRESSION [None]
  - MULTI-ORGAN FAILURE [None]
  - NYSTAGMUS [None]
  - OPPORTUNISTIC INFECTION [None]
  - POLYARTHRITIS [None]
  - PSYCHOTIC DISORDER [None]
  - SEPSIS [None]
  - VASCULITIS [None]
